FAERS Safety Report 16444797 (Version 1)
Quarter: 2019Q2

REPORT INFORMATION
  Report Type: Report from Study
  Country: US (occurrence: US)
  Receive Date: 20190618
  Receipt Date: 20190618
  Transmission Date: 20190711
  Serious: Yes (Hospitalization)
  Sender: FDA-Public Use
  Company Number: US-SA-2019SA164528

PATIENT
  Age: 82 Year
  Sex: Male

DRUGS (4)
  1. TAMSULOSIN HYDROCHLORIDE. [Suspect]
     Active Substance: TAMSULOSIN HYDROCHLORIDE
     Indication: PRODUCT USED FOR UNKNOWN INDICATION
     Dosage: UNK, UNK
     Route: 065
  2. OFEV [Suspect]
     Active Substance: NINTEDANIB
     Dosage: 200 MG, QD
     Route: 048
  3. OFEV [Suspect]
     Active Substance: NINTEDANIB
     Indication: IDIOPATHIC PULMONARY FIBROSIS
     Dosage: 300 MG, QD
     Route: 048
     Dates: start: 20170102, end: 20180101
  4. OFEV [Suspect]
     Active Substance: NINTEDANIB
     Dosage: 100 MG, QD
     Dates: start: 20170425

REACTIONS (15)
  - Abdominal discomfort [Unknown]
  - Fall [Unknown]
  - Decreased appetite [Recovered/Resolved]
  - Dyspnoea exertional [Unknown]
  - Asthenia [Recovered/Resolved]
  - Dyspnoea [Not Recovered/Not Resolved]
  - Asthenia [Unknown]
  - Heart rate irregular [Unknown]
  - Dizziness [Unknown]
  - Weight decreased [Recovered/Resolved]
  - Ageusia [Unknown]
  - Cough [Recovering/Resolving]
  - Diarrhoea [Recovered/Resolved]
  - Productive cough [Recovering/Resolving]
  - Asthenia [Recovering/Resolving]
